FAERS Safety Report 16660927 (Version 34)
Quarter: 2021Q2

REPORT INFORMATION
  Report Type: Spontaneous
  Country: JP (occurrence: JP)
  Receive Date: 20190802
  Receipt Date: 20210610
  Transmission Date: 20210716
  Serious: Yes (Hospitalization, Other)
  Sender: FDA-Public Use
  Company Number: JP-BRISTOL-MYERS SQUIBB COMPANY-BMS-2019-064341

PATIENT
  Age: 68 Year
  Sex: Male

DRUGS (18)
  1. YERVOY [Suspect]
     Active Substance: IPILIMUMAB
     Dosage: 3 MILLIGRAM/KILOGRAM, Q3WK
     Route: 041
     Dates: start: 20190820, end: 20190820
  2. YERVOY [Suspect]
     Active Substance: IPILIMUMAB
     Indication: CHOROID MELANOMA
     Dosage: 3 MILLIGRAM/KILOGRAM, Q3WK
     Route: 041
     Dates: start: 20190620, end: 20190620
  3. PREDONINE [Concomitant]
     Active Substance: PREDNISOLONE
     Indication: PRODUCT USED FOR UNKNOWN INDICATION
     Dosage: 2 TAB
     Route: 065
  4. OPDIVO [Suspect]
     Active Substance: NIVOLUMAB
     Dosage: 80 MILLIGRAM, Q3WK
     Route: 041
     Dates: start: 20190820
  5. YERVOY [Suspect]
     Active Substance: IPILIMUMAB
     Dosage: 3 MILLIGRAM/KILOGRAM, Q3WK
     Route: 041
     Dates: start: 20190711, end: 20190711
  6. TALION [BEPOTASTINE BESILATE] [Suspect]
     Active Substance: BEPOTASTINE BESYLATE
     Indication: PRODUCT USED FOR UNKNOWN INDICATION
     Dosage: UNK
     Route: 048
  7. TAKECAB [Concomitant]
     Active Substance: VONOPRAZAN FUMARATE
     Indication: PRODUCT USED FOR UNKNOWN INDICATION
     Dosage: UNK
     Route: 065
  8. PREDONINE [Concomitant]
     Active Substance: PREDNISOLONE
     Dosage: 4 TAB
     Route: 065
  9. FERROMIA [Concomitant]
     Active Substance: SODIUM FERROUS CITRATE
     Indication: PRODUCT USED FOR UNKNOWN INDICATION
     Route: 065
  10. OPDIVO [Suspect]
     Active Substance: NIVOLUMAB
     Indication: CHOROID MELANOMA
     Dosage: 80 MILLIGRAM, Q3WK
     Route: 041
     Dates: start: 20190620
  11. OPDIVO [Suspect]
     Active Substance: NIVOLUMAB
     Dosage: 80 MILLIGRAM, Q3WK
     Route: 041
     Dates: start: 20190711
  12. OPDIVO [Suspect]
     Active Substance: NIVOLUMAB
     Dosage: UNK
     Route: 041
     Dates: start: 20200220
  13. OPDIVO [Suspect]
     Active Substance: NIVOLUMAB
     Dosage: UNK
     Route: 041
     Dates: start: 20200909
  14. CELTECT [Concomitant]
     Active Substance: OXATOMIDE
     Indication: PRODUCT USED FOR UNKNOWN INDICATION
     Route: 065
  15. MONTELUKAST [MONTELUKAST SODIUM] [Concomitant]
     Active Substance: MONTELUKAST SODIUM
     Indication: PRODUCT USED FOR UNKNOWN INDICATION
     Dosage: UNK
     Route: 065
  16. OPDIVO [Suspect]
     Active Substance: NIVOLUMAB
     Dosage: 240 MILLIGRAM, Q2WK
     Route: 041
     Dates: start: 20191009
  17. PYRETHIA [Suspect]
     Active Substance: PROMETHAZINE HYDROCHLORIDE
     Indication: PRODUCT USED FOR UNKNOWN INDICATION
     Dosage: UNK
     Route: 048
  18. RUPAFIN [Concomitant]
     Active Substance: RUPATADINE FUMARATE
     Indication: PRODUCT USED FOR UNKNOWN INDICATION
     Dosage: UNK
     Route: 065

REACTIONS (57)
  - Diarrhoea [Unknown]
  - Rhinorrhoea [Unknown]
  - Weight decreased [Recovering/Resolving]
  - Eyelid ptosis [Unknown]
  - Stomatitis [Recovering/Resolving]
  - Tooth loss [Unknown]
  - Small intestinal haemorrhage [Unknown]
  - Skin disorder [Not Recovered/Not Resolved]
  - Dry throat [Recovered/Resolved]
  - Small intestine polyp [Unknown]
  - Flatulence [Unknown]
  - Leukoderma [Unknown]
  - Malaise [Unknown]
  - Thirst [Recovered/Resolved]
  - Vitreous floaters [Unknown]
  - Haematochezia [Unknown]
  - Nausea [Unknown]
  - Tooth disorder [Unknown]
  - Fall [Unknown]
  - Tooth injury [Unknown]
  - Renal impairment [Unknown]
  - Headache [Unknown]
  - Oedema peripheral [Recovering/Resolving]
  - Rash [Unknown]
  - White blood cell count increased [Unknown]
  - Periorbital swelling [Unknown]
  - Scar [Unknown]
  - Blood lactate dehydrogenase increased [Unknown]
  - Haemorrhage [Unknown]
  - Large intestine perforation [Unknown]
  - Rash pruritic [Recovered/Resolved]
  - Dermatophytosis of nail [Unknown]
  - Pemphigoid [Not Recovered/Not Resolved]
  - Dizziness [Recovered/Resolved]
  - Acne [Unknown]
  - Constipation [Unknown]
  - Pruritus [Recovered/Resolved]
  - Decreased appetite [Not Recovered/Not Resolved]
  - Contusion [Unknown]
  - Immune-mediated enterocolitis [Unknown]
  - Myalgia [Recovered/Resolved]
  - Hyperthermia [Recovering/Resolving]
  - Hair colour changes [Not Recovered/Not Resolved]
  - Nervous system disorder [Unknown]
  - Dry skin [Unknown]
  - Drug eruption [Not Recovered/Not Resolved]
  - Ophthalmic herpes zoster [Recovering/Resolving]
  - Diabetes mellitus [Unknown]
  - Melaena [Unknown]
  - C-reactive protein increased [Unknown]
  - Pyrexia [Unknown]
  - Fatigue [Unknown]
  - Vomiting [Unknown]
  - Abdominal distension [Unknown]
  - Herpes zoster [Unknown]
  - Faeces pale [Unknown]
  - Gingivitis [Unknown]

NARRATIVE: CASE EVENT DATE: 201907
